FAERS Safety Report 19706187 (Version 2)
Quarter: 2021Q3

REPORT INFORMATION
  Report Type: Report from Study
  Country: None (occurrence: US)
  Receive Date: 20210817
  Receipt Date: 20210826
  Transmission Date: 20211014
  Serious: Yes (Hospitalization, Disabling, Other)
  Sender: FDA-Public Use
  Company Number: US-ABBVIE-21K-163-4038218-00

PATIENT
  Sex: Female

DRUGS (1)
  1. HUMIRA [Suspect]
     Active Substance: ADALIMUMAB
     Indication: HIDRADENITIS
     Route: 058
     Dates: start: 201904

REACTIONS (12)
  - Varicose vein [Unknown]
  - Deafness [Unknown]
  - Hypertension [Unknown]
  - Nasal operation [Unknown]
  - Hypercholesterolaemia [Unknown]
  - Paraplegia [Not Recovered/Not Resolved]
  - Cholecystectomy [Unknown]
  - Hernia [Unknown]
  - Arthritis [Unknown]
  - Extradural haematoma [Not Recovered/Not Resolved]
  - Peripheral swelling [Unknown]
  - Diabetes mellitus [Unknown]
